FAERS Safety Report 15393356 (Version 1)
Quarter: 2018Q3

REPORT INFORMATION
  Report Type: Spontaneous
  Country: FR (occurrence: FR)
  Receive Date: 20180917
  Receipt Date: 20180917
  Transmission Date: 20181010
  Serious: Yes (Death)
  Sender: FDA-Public Use
  Company Number: FR-MYLANLABS-2018M1067512

PATIENT
  Age: 20 Month
  Sex: Male

DRUGS (6)
  1. CANAKINUMAB. [Suspect]
     Active Substance: CANAKINUMAB
     Indication: NEUTROPHILIC PANNICULITIS
     Dosage: UNK
  2. CYCLOPHOSPHAMIDE. [Suspect]
     Active Substance: CYCLOPHOSPHAMIDE
     Indication: NEUTROPHILIC PANNICULITIS
     Dosage: UNK
  3. INFLIXIMAB [Suspect]
     Active Substance: INFLIXIMAB
     Indication: NEUTROPHILIC PANNICULITIS
     Dosage: UNK
  4. ANAKINRA [Suspect]
     Active Substance: ANAKINRA
     Indication: NEUTROPHILIC PANNICULITIS
     Dosage: UNK
  5. PREDNISONE. [Suspect]
     Active Substance: PREDNISONE
     Indication: NEUTROPHILIC PANNICULITIS
     Dosage: 2 MG/KG, QD
  6. IMMUNOGLOBULIN I.V [Concomitant]
     Active Substance: HUMAN IMMUNOGLOBULIN G
     Indication: NEUTROPHILIC PANNICULITIS
     Dosage: 400 MG/KG, QD

REACTIONS (1)
  - Death [Fatal]
